FAERS Safety Report 5759801-X (Version None)
Quarter: 2008Q2

REPORT INFORMATION
  Report Type: 
  Country: None (occurrence: None)
  Receive Date: 20080605
  Receipt Date: 20080602
  Transmission Date: 20081010
  Serious: Yes (Other)
  Sender: FDA-Public Use
  Company Number: D0057487A

PATIENT
  Age: 41 Year
  Sex: Female

DRUGS (3)
  1. ELONTRIL [Suspect]
     Dosage: 20TAB SINGLE DOSE
     Route: 048
  2. LORAZEPAM [Suspect]
     Route: 065
  3. ZOPICLON [Suspect]
     Route: 065

REACTIONS (2)
  - INTENTIONAL OVERDOSE [None]
  - SUICIDE ATTEMPT [None]
